FAERS Safety Report 5750442-7 (Version None)
Quarter: 2008Q2

REPORT INFORMATION
  Report Type: 
  Country: None (occurrence: None)
  Receive Date: 20080528
  Receipt Date: 20080321
  Transmission Date: 20081010
  Serious: Yes (Hospitalization)
  Sender: FDA-Public Use
  Company Number: US-KINGPHARMUSA00001-K200800352

PATIENT

DRUGS (6)
  1. AVINZA [Suspect]
     Indication: PAIN
     Dosage: 30 MG, QD
     Route: 048
     Dates: start: 20080201, end: 20080101
  2. AVINZA [Suspect]
     Dosage: 60 MG, QD
     Route: 048
     Dates: start: 20080101, end: 20080101
  3. AVINZA [Suspect]
     Dosage: 90 MG, QD
     Route: 048
     Dates: start: 20080101, end: 20080301
  4. CYMBALTA [Concomitant]
     Dosage: 60 MG, BID
     Dates: start: 20080101
  5. LYRICA [Concomitant]
     Dosage: 100 MG, TID
     Dates: start: 20080101
  6. ULTRACET [Concomitant]
     Indication: BREAKTHROUGH PAIN
     Dosage: UNK, PRN
     Dates: start: 20080101

REACTIONS (2)
  - OVERDOSE [None]
  - RESPIRATORY DEPRESSION [None]
